FAERS Safety Report 4673735-3 (Version None)
Quarter: 2005Q2

REPORT INFORMATION
  Report Type: 
  Country: None (occurrence: None)
  Receive Date: 20050523
  Receipt Date: 20050510
  Transmission Date: 20051028
  Serious: Yes (Other)
  Sender: FDA-Public Use
  Company Number: S05-USA-01991-01

PATIENT
  Age: 28 Year
  Sex: Female

DRUGS (6)
  1. LEXAPRO [Suspect]
     Indication: ANXIETY
     Dosage: 10 MG QD PO
     Route: 048
     Dates: start: 20041001, end: 20050408
  2. LEXAPRO [Suspect]
     Indication: DEPRESSION
     Dosage: 10 MG QD PO
     Route: 048
     Dates: start: 20041001, end: 20050408
  3. LEXAPRO [Suspect]
     Indication: DEPRESSION
     Dosage: 5 MG QD PO
     Route: 048
     Dates: start: 20050414
  4. LEXAPRO [Suspect]
     Indication: ANXIETY
     Dosage: 5 MG QD PO
     Route: 048
     Dates: start: 20050401
  5. ATIVAN [Concomitant]
  6. ORTHO EVRA [Concomitant]

REACTIONS (16)
  - CONFUSIONAL STATE [None]
  - CONVULSION [None]
  - CYANOSIS [None]
  - DEPRESSION [None]
  - DRUG WITHDRAWAL SYNDROME [None]
  - EMOTIONAL DISORDER [None]
  - FEELING ABNORMAL [None]
  - FOAMING AT MOUTH [None]
  - GRAND MAL CONVULSION [None]
  - MEMORY IMPAIRMENT [None]
  - MUSCLE TWITCHING [None]
  - MYDRIASIS [None]
  - RESPIRATORY ARREST [None]
  - SENSORY DISTURBANCE [None]
  - SIMPLE PARTIAL SEIZURES [None]
  - TREMOR [None]
